FAERS Safety Report 20106281 (Version 1)
Quarter: 2021Q4

REPORT INFORMATION
  Report Type: Spontaneous
  Country: PL (occurrence: PL)
  Receive Date: 20211124
  Receipt Date: 20211124
  Transmission Date: 20220304
  Serious: Yes (Other)
  Sender: FDA-Public Use
  Company Number: PL-AMGEN-POLSP2021182802

PATIENT
  Age: 68 Year
  Sex: Male

DRUGS (5)
  1. PANITUMUMAB [Suspect]
     Active Substance: PANITUMUMAB
     Indication: Colorectal cancer metastatic
     Dosage: 6 MILLIGRAM/KILOGRAM (D1) 552 MG
     Route: 042
     Dates: start: 20190528
  2. OXALIPLATIN [Concomitant]
     Active Substance: OXALIPLATIN
     Indication: Colorectal cancer metastatic
     Dosage: 85 MILLIGRAM/SQ. METER (D1) 157.7MG
     Route: 042
     Dates: start: 20190528
  3. FLUOROURACIL [Concomitant]
     Active Substance: FLUOROURACIL
     Indication: Colorectal cancer metastatic
     Dosage: 400 MILLIGRAM/SQ. METER (D1-D2) -816.8 MG
     Route: 040
     Dates: start: 20190528
  4. FLUOROURACIL [Concomitant]
     Active Substance: FLUOROURACIL
     Dosage: 600 MILLIGRAM/SQ. METER  22-HOUR INFUSION (D1-D2) 1240.2 MG
     Route: 042
  5. LEUCOVORIN [Concomitant]
     Active Substance: LEUCOVORIN
     Indication: Colorectal cancer metastatic
     Dosage: 100 MILLIGRAM/SQ. METER 22-HOUR INFUSION (D1-D2) -206.7 MG
     Route: 042
     Dates: start: 20190528

REACTIONS (5)
  - Polyneuropathy [Not Recovered/Not Resolved]
  - COVID-19 [Unknown]
  - Eyelash changes [Unknown]
  - Rash [Not Recovered/Not Resolved]
  - Ocular hyperaemia [Unknown]
